FAERS Safety Report 7404264-1 (Version None)
Quarter: 2011Q2

REPORT INFORMATION
  Report Type: 
  Country: None (occurrence: None)
  Receive Date: 20110408
  Receipt Date: 20110330
  Transmission Date: 20111010
  Serious: Yes (Hospitalization)
  Sender: FDA-Public Use
  Company Number: US-CEPHALON-2011001512

PATIENT
  Age: 49 Year
  Sex: Male

DRUGS (4)
  1. FENTANYL [Suspect]
  2. FENTANYL CITRATE [Suspect]
     Indication: ARTHRALGIA
  3. FENTANYL CITRATE [Suspect]
     Indication: NECK PAIN
  4. OXYCODONE [Concomitant]

REACTIONS (3)
  - INTENTIONAL DRUG MISUSE [None]
  - SOMNOLENCE [None]
  - FEELING ABNORMAL [None]
